FAERS Safety Report 8334039-0 (Version None)
Quarter: 2012Q2

REPORT INFORMATION
  Report Type: 
  Country: None (occurrence: None)
  Receive Date: 20120503
  Receipt Date: 20110201
  Transmission Date: 20120825
  Serious: No
  Sender: FDA-Public Use
  Company Number: US-TEVA-2011000532

PATIENT
  Sex: Male

DRUGS (5)
  1. NUVIGIL [Suspect]
     Dosage: 250 MILLIGRAM;
     Route: 048
     Dates: end: 20091101
  2. LUNESTA [Concomitant]
     Dates: start: 20100601, end: 20110101
  3. NUVIGIL [Suspect]
     Indication: NARCOLEPSY
     Dosage: 150 MILLIGRAM;
     Route: 048
     Dates: start: 20090901
  4. RITALIN [Concomitant]
     Dates: start: 20091201, end: 20110101
  5. AMOXICILLIN [Concomitant]
     Dates: start: 20100101

REACTIONS (2)
  - DRUG INEFFECTIVE [None]
  - DRUG PRESCRIBING ERROR [None]
